FAERS Safety Report 10459156 (Version 1)
Quarter: 2014Q3

REPORT INFORMATION
  Report Type: Spontaneous
  Country: GB (occurrence: GB)
  Receive Date: 20140917
  Receipt Date: 20140917
  Transmission Date: 20150326
  Serious: Yes (Hospitalization, Other)
  Sender: FDA-Public Use
  Company Number: GB-SA-2014SA126000

PATIENT
  Age: 54 Year
  Sex: Female
  Weight: 50.5 kg

DRUGS (20)
  1. ISONIAZID. [Concomitant]
     Active Substance: ISONIAZID
  2. PYRAZINAMIDE. [Concomitant]
     Active Substance: PYRAZINAMIDE
  3. RIFAMPICIN [Interacting]
     Active Substance: RIFAMPIN
     Indication: MYCOBACTERIAL INFECTION
     Route: 048
     Dates: start: 20140816
  4. OMEPRAZOLE. [Concomitant]
     Active Substance: OMEPRAZOLE
  5. PARACETAMOL [Concomitant]
     Active Substance: ACETAMINOPHEN
  6. VITAMIN B COMPLEX [Concomitant]
     Active Substance: CYANOCOBALAMIN\DEXPANTHENOL\NIACINAMIDE\PYRIDOXINE HYDROCHLORIDE\RIBOFLAVIN 5^-PHOSPHATE SODIUM\THIAMINE HYDROCHLORIDE\VITAMIN B COMPLEX
  7. CLOPIDOGREL [Concomitant]
     Active Substance: CLOPIDOGREL BISULFATE
  8. PREDNISOLONE. [Concomitant]
     Active Substance: PREDNISOLONE
  9. RANITIDINE [Concomitant]
     Active Substance: RANITIDINE\RANITIDINE HYDROCHLORIDE
  10. DOMPERIDONE [Concomitant]
     Active Substance: DOMPERIDONE
  11. ETHAMBUTOL [Concomitant]
     Active Substance: ETHAMBUTOL HYDROCHLORIDE
  12. RAMIPRIL. [Concomitant]
     Active Substance: RAMIPRIL
  13. METOPROLOL [Concomitant]
     Active Substance: METOPROLOL
  14. PYRIDOXINE [Concomitant]
     Active Substance: PYRIDOXINE
  15. AMIODARONE [Suspect]
     Active Substance: AMIODARONE
     Indication: ARRHYTHMIA SUPRAVENTRICULAR
     Route: 048
     Dates: start: 20140826, end: 20140902
  16. ATORVASTATIN [Concomitant]
     Active Substance: ATORVASTATIN
  17. CETIRIZINE [Concomitant]
     Active Substance: CETIRIZINE HYDROCHLORIDE
  18. EPOETIN NOS [Concomitant]
     Active Substance: ERYTHROPOIETIN
  19. MOXIFLOXACIN [Concomitant]
     Active Substance: MOXIFLOXACIN
  20. THIAMINE [Concomitant]
     Active Substance: THIAMINE

REACTIONS (3)
  - Drug ineffective [Unknown]
  - Drug interaction [Unknown]
  - Acute pulmonary oedema [Recovered/Resolved]

NARRATIVE: CASE EVENT DATE: 20140831
